FAERS Safety Report 7503432-8 (Version None)
Quarter: 2011Q2

REPORT INFORMATION
  Report Type: 
  Country: None (occurrence: None)
  Receive Date: 20110524
  Receipt Date: 20110524
  Transmission Date: 20111010
  Serious: Yes (Other)
  Sender: FDA-Public Use
  Company Number: None

PATIENT
  Age: 54 Year
  Sex: Female

DRUGS (1)
  1. CLARITIN [Suspect]
     Indication: MULTIPLE ALLERGIES
     Dosage: 1 TABLET EVERY 24 HOURS
     Dates: start: 20110518, end: 20110521

REACTIONS (6)
  - PANIC ATTACK [None]
  - HEART RATE INCREASED [None]
  - PALPITATIONS [None]
  - DEPRESSION [None]
  - ANXIETY [None]
  - NERVOUSNESS [None]
